FAERS Safety Report 6306024-1 (Version None)
Quarter: 2009Q3

REPORT INFORMATION
  Report Type: 
  Country: None (occurrence: None)
  Receive Date: 20090810
  Receipt Date: 20090810
  Transmission Date: 20100115
  Serious: Yes (Life-Threatening)
  Sender: FDA-Public Use
  Company Number: None

PATIENT
  Age: 65 Year
  Sex: Male
  Weight: 66.2252 kg

DRUGS (10)
  1. AVASTIN [Suspect]
     Indication: NON-SMALL CELL LUNG CANCER
     Dosage: 15MG D -14 + D1 Q21D
     Dates: start: 20090610, end: 20090715
  2. ABRAXANE [Suspect]
     Indication: NON-SMALL CELL LUNG CANCER
     Dosage: 100 MG D1, 8 + 15
     Dates: start: 20090624, end: 20090729
  3. CARBOPLATIN [Suspect]
     Indication: NON-SMALL CELL LUNG CANCER
     Dosage: D1 Q 21 DAYS
     Dates: start: 20090624, end: 20090715
  4. BACTRIUM [Concomitant]
  5. COLACE [Concomitant]
  6. COMPAZINE [Concomitant]
  7. DECADRON [Concomitant]
  8. OMEPRAZOLE [Concomitant]
  9. SENNA TABLETS [Concomitant]
  10. ZOFRAN [Concomitant]

REACTIONS (2)
  - DRUG TOXICITY [None]
  - PULMONARY EMBOLISM [None]
